FAERS Safety Report 11106624 (Version 1)
Quarter: 2015Q2

REPORT INFORMATION
  Report Type: Spontaneous
  Country: CN (occurrence: CN)
  Receive Date: 20150512
  Receipt Date: 20150512
  Transmission Date: 20150821
  Serious: Yes (Hospitalization)
  Sender: FDA-Public Use
  Company Number: CN-ASTELLAS-2015JP009757

PATIENT
  Age: 8 Year
  Sex: Male

DRUGS (5)
  1. PREDNISONE. [Interacting]
     Active Substance: PREDNISONE
     Route: 048
  2. TACROLIMUS. [Suspect]
     Active Substance: TACROLIMUS
     Indication: GLOMERULONEPHRITIS MEMBRANOUS
     Route: 065
     Dates: start: 20110520
  3. PREDNISONE. [Interacting]
     Active Substance: PREDNISONE
     Indication: GLOMERULONEPHRITIS MEMBRANOUS
     Route: 048
  4. PREDNISONE. [Interacting]
     Active Substance: PREDNISONE
     Route: 048
  5. PREDNISONE. [Interacting]
     Active Substance: PREDNISONE
     Route: 048
     Dates: start: 20110525

REACTIONS (2)
  - Drug interaction [Unknown]
  - Diabetic ketoacidosis [Recovering/Resolving]
